FAERS Safety Report 5961805-9 (Version None)
Quarter: 2008Q4

REPORT INFORMATION
  Report Type: 
  Country: None (occurrence: None)
  Receive Date: 20081121
  Receipt Date: 20081110
  Transmission Date: 20090506
  Serious: Yes (Hospitalization)
  Sender: FDA-Public Use
  Company Number: US-ELI_LILLY_AND_COMPANY-US200811002232

PATIENT
  Sex: Male

DRUGS (7)
  1. CYMBALTA [Suspect]
     Indication: MAJOR DEPRESSION
     Dosage: 180 MG, DAILY (1/D)
  2. COZAAR [Concomitant]
  3. METFORMIN HCL [Concomitant]
  4. PROMETHAZINE [Concomitant]
  5. DIAZEPAM [Concomitant]
  6. PROTONIX [Concomitant]
  7. POTASSIUM CHLORIDE [Concomitant]

REACTIONS (6)
  - ARRHYTHMIA [None]
  - ATRIAL FIBRILLATION [None]
  - CARDIAC FAILURE CONGESTIVE [None]
  - CARDIOMYOPATHY [None]
  - OVERDOSE [None]
  - PULMONARY OEDEMA [None]
